FAERS Safety Report 6279872-4 (Version None)
Quarter: 2009Q3

REPORT INFORMATION
  Report Type: 
  Country: None (occurrence: None)
  Receive Date: 20090723
  Receipt Date: 20090720
  Transmission Date: 20100115
  Serious: Yes (Death, Other)
  Sender: FDA-Public Use
  Company Number: PHHY2009FI29838

PATIENT
  Age: 68 Year
  Sex: Male

DRUGS (2)
  1. CYCLOSPORINE [Suspect]
     Indication: RENAL TRANSPLANT
  2. METHYLPREDNISOLONE [Suspect]
     Indication: IMMUNOSUPPRESSION

REACTIONS (6)
  - BASAL CELL CARCINOMA [None]
  - MALIGNANT TUMOUR EXCISION [None]
  - METASTASES TO NECK [None]
  - NEUROENDOCRINE CARCINOMA OF THE SKIN [None]
  - RADIOTHERAPY [None]
  - SQUAMOUS CELL CARCINOMA OF SKIN [None]
